FAERS Safety Report 14195089 (Version 2)
Quarter: 2018Q1

REPORT INFORMATION
  Report Type: Spontaneous
  Country: US (occurrence: US)
  Receive Date: 20171116
  Receipt Date: 20180110
  Transmission Date: 20180508
  Serious: No
  Sender: FDA-Public Use
  Company Number: US-PFIZER INC-2017490795

PATIENT
  Sex: Female

DRUGS (1)
  1. EMBEDA [Suspect]
     Active Substance: MORPHINE SULFATE\NALTREXONE HYDROCHLORIDE
     Indication: PAIN
     Dosage: 50 MG, 2X/DAY
     Route: 048
     Dates: start: 20171009

REACTIONS (2)
  - Fall [Unknown]
  - Pain [Unknown]

NARRATIVE: CASE EVENT DATE: 20171110
